FAERS Safety Report 8314074-9 (Version None)
Quarter: 2012Q2

REPORT INFORMATION
  Report Type: 
  Country: None (occurrence: None)
  Receive Date: 20120426
  Receipt Date: 20120412
  Transmission Date: 20120825
  Serious: Yes (Life-Threatening, Other)
  Sender: FDA-Public Use
  Company Number: KR-RANBAXY-2012RR-55443

PATIENT
  Age: 56 Year
  Sex: Female

DRUGS (16)
  1. DEXAMETHASONE [Concomitant]
     Indication: ANTIEMETIC SUPPORTIVE CARE
     Route: 065
  2. CYCLOPHOSPHAMIDE [Suspect]
     Dosage: 720 MG, 20% REDUCTION FROM THE FIRST CYCLE DOSE
     Route: 042
  3. DOXORUBICIN HCL [Suspect]
     Dosage: 72 MG, 20% REDUCTION FROM THE FIRTS CYCLE DOSE
     Route: 065
  4. PALONOSETRON [Concomitant]
     Indication: ANTIEMETIC SUPPORTIVE CARE
     Route: 065
  5. CYCLOPHOSPHAMIDE [Suspect]
     Indication: CHEMOTHERAPY MULTIPLE AGENTS SYSTEMIC
     Dosage: 900 MG, UNK
     Route: 042
  6. ISOTONIC SODIUM CHLORIDE [Suspect]
     Indication: SUPPORTIVE CARE
     Route: 065
  7. NIFEDIPINE [Concomitant]
     Indication: HYPERTENSION
     Dosage: 30 MG, UNK
     Route: 065
  8. ASPIRIN [Concomitant]
     Indication: HYPERTENSION
     Dosage: 100 MG, QD
     Route: 065
  9. DOXORUBICIN HCL [Suspect]
     Indication: CHEMOTHERAPY MULTIPLE AGENTS SYSTEMIC
     Dosage: 90 MG, UNK
     Route: 065
  10. PROPRANOLOL [Concomitant]
     Indication: CEREBRAL HAEMORRHAGE
  11. ENALAPRIL MALEATE [Suspect]
     Indication: CEREBRAL HAEMORRHAGE
  12. CISPLATIN [Concomitant]
     Indication: PRODUCT USED FOR UNKNOWN INDICATION
     Dosage: 600 MG/M2, UNK
     Route: 065
  13. ENALAPRIL MALEATE [Suspect]
     Indication: HYPERTENSION
     Dosage: 10 MG, UNK
     Route: 065
  14. PROPRANOLOL [Concomitant]
     Indication: HYPERTENSION
     Dosage: 40 MG, UNK
     Route: 065
  15. NIFEDIPINE [Concomitant]
     Indication: CEREBRAL HAEMORRHAGE
  16. ASPIRIN [Concomitant]
     Indication: CEREBRAL HAEMORRHAGE

REACTIONS (3)
  - GRAND MAL CONVULSION [None]
  - FLUID RETENTION [None]
  - HYPONATRAEMIA [None]
